FAERS Safety Report 23361294 (Version 1)
Quarter: 2024Q1

REPORT INFORMATION
  Report Type: Spontaneous
  Country: FR (occurrence: FR)
  Receive Date: 20240103
  Receipt Date: 20240103
  Transmission Date: 20240410
  Serious: Yes (Hospitalization)
  Sender: FDA-Public Use
  Company Number: None

PATIENT
  Age: 88 Year
  Sex: Female

DRUGS (2)
  1. LINEZOLID [Suspect]
     Active Substance: LINEZOLID
     Indication: Osteomyelitis
     Dosage: 600 MILLIGRAM, BID
     Route: 048
     Dates: start: 20231009
  2. TEDIZOLID PHOSPHATE [Suspect]
     Active Substance: TEDIZOLID PHOSPHATE
     Indication: Osteomyelitis
     Dosage: 200 MILLIGRAM, QD
     Route: 048
     Dates: start: 20231027

REACTIONS (2)
  - Cross sensitivity reaction [Recovered/Resolved]
  - Thrombocytopenia [Recovered/Resolved]

NARRATIVE: CASE EVENT DATE: 20231027
